FAERS Safety Report 8099888 (Version 10)
Quarter: 2012Q4

REPORT INFORMATION
  Report Type: Report from Study
  Country: ES (occurrence: ES)
  Receive Date: 20110822
  Receipt Date: 20121219
  Transmission Date: 20130627
  Serious: Yes (Other)
  Sender: FDA-Public Use
  Company Number: ES-ROCHE-796392

PATIENT
  Age: 56 Year
  Sex: Female
  Weight: 51 kg

DRUGS (8)
  1. TRASTUZUMAB [Suspect]
     Indication: BREAST CANCER METASTATIC
     Dosage: Dose for: vial. DATE OF LAST DOSE PRIOR TO SAE: 21-JUL-2011. PERMANENTLY DISCONTINUED ON 31 AUGUST 2
     Route: 042
     Dates: start: 20110405, end: 20110831
  2. PERTUZUMAB [Suspect]
     Indication: BREAST CANCER METASTATIC
     Dosage: Dose for : Vial. DATE OF LAST DOSE PRIOR TO SAE: 21-JUL-2011. PERMANENTLY DISCONTINUED ON 31 AUGUST
     Route: 042
     Dates: start: 20110404, end: 20110831
  3. CAPECITABINE [Suspect]
     Indication: BREAST CANCER METASTATIC
     Dosage: DATE OF LAST DOSE PRIOR TO SAE 4-AUG-2011. PERMANENTLY DISCONTINUED.
     Route: 042
     Dates: start: 20110405, end: 20110831
  4. IBUPROFEN [Concomitant]
     Route: 065
     Dates: start: 20110608, end: 20111014
  5. LORAZEPAM [Concomitant]
     Dosage: TDD: IF REQUIRED
     Route: 065
  6. LORAZEPAM [Concomitant]
     Route: 065
     Dates: start: 20110228, end: 20110817
  7. LOW MOLECULAR WEIGHT HEPARIN [Concomitant]
     Route: 065
  8. PANTOPRAZOLE [Concomitant]

REACTIONS (1)
  - Left ventricular dysfunction [Recovered/Resolved]
